FAERS Safety Report 5194078-8 (Version None)
Quarter: 2006Q4

REPORT INFORMATION
  Report Type: 
  Country: None (occurrence: None)
  Receive Date: 20061222
  Receipt Date: 20061212
  Transmission Date: 20070319
  Serious: Yes (Hospitalization, Other)
  Sender: FDA-Public Use
  Company Number: MC200600703

PATIENT
  Age: 86 Year
  Sex: Female

DRUGS (1)
  1. ANGIOMAX [Suspect]
     Indication: PERCUTANEOUS CORONARY INTERVENTION
     Dosage: INTRAVENOUS
     Route: 042
     Dates: start: 20061001, end: 20061001

REACTIONS (3)
  - CORONARY ARTERY PERFORATION [None]
  - HAEMORRHAGE [None]
  - PROCEDURAL COMPLICATION [None]
